FAERS Safety Report 18341525 (Version 2)
Quarter: 2020Q4

REPORT INFORMATION
  Report Type: Spontaneous
  Country: FR (occurrence: FR)
  Receive Date: 20201004
  Receipt Date: 20201119
  Transmission Date: 20210113
  Serious: Yes (Other)
  Sender: FDA-Public Use
  Company Number: FR-TEVA-2020-FR-1834442

PATIENT
  Age: 34 Year
  Sex: Female
  Weight: 66.1 kg

DRUGS (3)
  1. FLUOXETINE (CHLORHYDRATE DE) [Suspect]
     Active Substance: FLUOXETINE HYDROCHLORIDE
     Indication: MIXED ANXIETY AND DEPRESSIVE DISORDER
     Dosage: 20MG
     Route: 048
     Dates: start: 202004, end: 20200828
  2. ALPRAZOLAM. [Concomitant]
     Active Substance: ALPRAZOLAM
     Indication: MIXED ANXIETY AND DEPRESSIVE DISORDER
     Dosage: 1.5MG
     Route: 048
     Dates: start: 202002
  3. KETOPROFENE [Concomitant]
     Active Substance: KETOPROFEN
     Indication: PAIN
     Dosage: 7 DAYS A WEEK, 7 DOSAGE FORMS
     Route: 048

REACTIONS (2)
  - Leukopenia [Recovered/Resolved]
  - Thrombocytopenia [Recovered/Resolved]

NARRATIVE: CASE EVENT DATE: 20200827
